FAERS Safety Report 23405218 (Version 1)
Quarter: 2024Q1

REPORT INFORMATION
  Report Type: Spontaneous
  Country: US (occurrence: None)
  Receive Date: 20240112
  Receipt Date: 20240112
  Transmission Date: 20240410
  Serious: Yes (Other)
  Sender: FDA-Public Use
  Company Number: None

PATIENT
  Sex: Male

DRUGS (1)
  1. OZEMPIC [Suspect]
     Active Substance: SEMAGLUTIDE
     Indication: Diabetes mellitus

REACTIONS (5)
  - Abdominal pain upper [None]
  - Vomiting [None]
  - Constipation [None]
  - Suicidal ideation [None]
  - Internal haemorrhage [None]

NARRATIVE: CASE EVENT DATE: 20231101
